FAERS Safety Report 5918403-2 (Version None)
Quarter: 2008Q4

REPORT INFORMATION
  Report Type: 
  Country: None (occurrence: None)
  Receive Date: 20081010
  Receipt Date: 20080709
  Transmission Date: 20090506
  Serious: Yes (Death)
  Sender: FDA-Public Use
  Company Number: 2008-179520-NL

PATIENT
  Age: 29 Year
  Sex: Female

DRUGS (1)
  1. PANCURONIUM BROMIDE [Suspect]
     Indication: COMPLETED SUICIDE
     Route: 042
     Dates: start: 20080621, end: 20080621

REACTIONS (3)
  - COMPLETED SUICIDE [None]
  - NEEDLE TRACK MARKS [None]
  - OVERDOSE [None]
